FAERS Safety Report 4871585-6 (Version None)
Quarter: 2006Q1

REPORT INFORMATION
  Report Type: 
  Country: None (occurrence: None)
  Receive Date: 20060104
  Receipt Date: 20051227
  Transmission Date: 20060701
  Serious: Yes (Hospitalization)
  Sender: FDA-Public Use
  Company Number: US-JNJFOC-20051206026

PATIENT
  Sex: Female
  Weight: 53.52 kg

DRUGS (7)
  1. REMICADE [Suspect]
     Route: 042
  2. REMICADE [Suspect]
     Indication: CROHN'S DISEASE
     Route: 042
  3. IMURAN [Concomitant]
     Indication: CROHN'S DISEASE
  4. ZOLOFT [Concomitant]
     Indication: DEPRESSION
  5. CLONIPINE [Concomitant]
     Indication: SLEEP DISORDER
  6. PERCOCET [Concomitant]
  7. PERCOCET [Concomitant]
     Indication: PAIN

REACTIONS (5)
  - CLOSTRIDIAL INFECTION [None]
  - DIARRHOEA [None]
  - HEADACHE [None]
  - OEDEMA PERIPHERAL [None]
  - SEPSIS [None]
